FAERS Safety Report 8532808-5 (Version None)
Quarter: 2012Q3

REPORT INFORMATION
  Report Type: 
  Country: None (occurrence: None)
  Receive Date: 20120724
  Receipt Date: 20120720
  Transmission Date: 20120928
  Serious: Yes (Other)
  Sender: FDA-Public Use
  Company Number: PHEH2012US012434

PATIENT
  Sex: Female
  Weight: 58.05 kg

DRUGS (6)
  1. OXYCODONE HCL [Concomitant]
     Indication: PAIN
  2. DILTIAZEM [Concomitant]
     Indication: ATRIAL FIBRILLATION
  3. DIAZEPAM [Concomitant]
     Indication: ANXIETY
     Dosage: 5 MG, UNK
     Route: 048
  4. BUTALBITAL [Concomitant]
     Indication: HEADACHE
     Dosage: 50 MG, UNK
     Route: 048
  5. KEPPRA [Suspect]
     Indication: CONVULSION
  6. DIOVAN [Suspect]
     Indication: HYPERTENSION
     Dosage: 160 MG, QD
     Route: 048

REACTIONS (3)
  - FALL [None]
  - SYNCOPE [None]
  - UPPER LIMB FRACTURE [None]
